FAERS Safety Report 20879967 (Version 1)
Quarter: 2022Q2

REPORT INFORMATION
  Report Type: Spontaneous
  Country: US (occurrence: US)
  Receive Date: 20220526
  Receipt Date: 20220526
  Transmission Date: 20220721
  Serious: No
  Sender: FDA-Public Use
  Company Number: US-RADIUS HEALTH INC.-2021US004483

PATIENT
  Age: 48 Year
  Sex: Female

DRUGS (2)
  1. TYMLOS [Suspect]
     Active Substance: ABALOPARATIDE
     Indication: Senile osteoporosis
     Dosage: 80 MCG, DAILY
     Route: 058
     Dates: start: 20210817
  2. TYMLOS [Suspect]
     Active Substance: ABALOPARATIDE
     Indication: Rheumatoid arthritis

REACTIONS (7)
  - Condition aggravated [Unknown]
  - Blood pressure increased [Unknown]
  - Abdominal pain [Unknown]
  - Palpitations [Unknown]
  - Injection site reaction [Unknown]
  - Abdominal pain [None]
  - Drug ineffective [None]

NARRATIVE: CASE EVENT DATE: 20210801
